FAERS Safety Report 8474134 (Version 3)
Quarter: 2012Q4

REPORT INFORMATION
  Report Type: 
  Country: US (occurrence: US)
  Receive Date: 20120323
  Receipt Date: 20120904
  Transmission Date: 20130627
  Serious: Yes (Hospitalization, Other)
  Sender: FDA-Public Use
  Company Number: US-AMGEN-USASP2012017201

PATIENT
  Age: 35 Year
  Sex: Female
  Weight: 46.71 kg

DRUGS (11)
  1. ENBREL [Suspect]
     Indication: RHEUMATOID ARTHRITIS
     Dosage: 50 mg, qwk
     Route: 058
     Dates: start: 201002
  2. PREDNISONE [Concomitant]
     Dosage: 5 mg, qd
     Route: 048
  3. PREDNISONE [Concomitant]
     Dosage: 10 mg, qd
  4. PREDNISONE [Concomitant]
     Dosage: 15 mg, UNK
  5. PREDNISONE [Concomitant]
     Dosage: 20 mg, UNK
  6. VITAMINS           /90003601/ [Concomitant]
     Dosage: UNK UNK, qd
     Route: 048
  7. SULFASALAZINE [Concomitant]
     Dosage: 5 pillls daily
     Dates: end: 20120127
  8. VITAMIN D /00107901/ [Concomitant]
     Dosage: 2000 mg, qd
  9. FOLIC ACID [Concomitant]
     Dosage: 800 UNK, qd
  10. CALCIUM [Concomitant]
     Dosage: 2000 mg, qd
  11. DHA [Concomitant]
     Dosage: UNK UNK, qd

REACTIONS (4)
  - Premature delivery [Recovered/Resolved]
  - Premature labour [Recovered/Resolved]
  - Premature rupture of membranes [Recovered/Resolved]
  - Rheumatoid arthritis [Unknown]
